FAERS Safety Report 10548474 (Version 2)
Quarter: 2014Q4

REPORT INFORMATION
  Report Type: Spontaneous
  Country: IT (occurrence: IT)
  Receive Date: 20141028
  Receipt Date: 20141028
  Transmission Date: 20150529
  Serious: Yes (Life-Threatening)
  Sender: FDA-Public Use
  Company Number: IT-MALLINCKRODT-T201403847

PATIENT
  Age: 9 Month
  Sex: Male

DRUGS (6)
  1. GLAZIDIM [Concomitant]
     Active Substance: CEFTAZIDIME
     Dosage: UNK
     Dates: start: 20140216, end: 20140219
  2. ADRENALINE [Concomitant]
     Active Substance: EPINEPHRINE
     Dosage: UNK
     Dates: start: 20140218, end: 20140219
  3. METRONIDAZOLE. [Concomitant]
     Active Substance: METRONIDAZOLE
     Dosage: UNK
     Dates: start: 20140216, end: 20140219
  4. RANITIDINE [Concomitant]
     Active Substance: RANITIDINE\RANITIDINE HYDROCHLORIDE
     Dosage: UNK
     Dates: start: 20140216, end: 20140219
  5. OFIRMEV [Suspect]
     Active Substance: ACETAMINOPHEN
     Indication: PROCEDURAL PAIN
     Dosage: 1200 MILLIGRAM 1 DAY
     Route: 042
     Dates: start: 20140217, end: 20140218
  6. BRONCOVALEAS [Concomitant]
     Active Substance: ALBUTEROL
     Dosage: UNK
     Dates: start: 20140218, end: 20140219

REACTIONS (4)
  - Hepatic failure [Recovering/Resolving]
  - Overdose [Recovering/Resolving]
  - Acidosis [Recovering/Resolving]
  - Drug administration error [Recovering/Resolving]

NARRATIVE: CASE EVENT DATE: 20140217
